FAERS Safety Report 8098767-7 (Version None)
Quarter: 2012Q1

REPORT INFORMATION
  Report Type: 
  Country: None (occurrence: None)
  Receive Date: 20120131
  Receipt Date: 20120118
  Transmission Date: 20120608
  Serious: Yes (Death)
  Sender: FDA-Public Use
  Company Number: JP-PURDUE-DEU-2011-0008263

PATIENT
  Age: 80 Year
  Sex: Female

DRUGS (3)
  1. VOLTAREN [Suspect]
     Dosage: 25 MG, DAILY
     Route: 054
     Dates: start: 20111012, end: 20111220
  2. PIPERAZINE                         /00113602/ [Concomitant]
     Indication: INFECTION
     Dosage: UNK
     Route: 042
     Dates: start: 20111213, end: 20111219
  3. BUPRENORPHINE [Suspect]
     Indication: PAIN
     Dosage: 5 MCG, Q1H
     Route: 062
     Dates: start: 20111217, end: 20111220

REACTIONS (3)
  - DEATH [None]
  - ARRHYTHMIA [None]
  - EXTRASYSTOLES [None]
